FAERS Safety Report 9439273 (Version 2)
Quarter: 2013Q3

REPORT INFORMATION
  Report Type: Spontaneous
  Country: US (occurrence: US)
  Receive Date: 20130804
  Receipt Date: 20130808
  Transmission Date: 20140515
  Serious: Yes (Other)
  Sender: FDA-Public Use
  Company Number: US-ROCHE-1255857

PATIENT
  Sex: Male
  Weight: 54.48 kg

DRUGS (1)
  1. XOLAIR [Suspect]
     Indication: ANAPHYLACTIC REACTION
     Route: 058
     Dates: start: 2011

REACTIONS (4)
  - Anaphylactic reaction [Unknown]
  - Anxiety [Unknown]
  - Anaphylactic reaction [Unknown]
  - Body height increased [Not Recovered/Not Resolved]
